FAERS Safety Report 8021931-X (Version None)
Quarter: 2011Q4

REPORT INFORMATION
  Report Type: 
  Country: None (occurrence: None)
  Receive Date: 20111230
  Receipt Date: 20111218
  Transmission Date: 20120403
  Serious: Yes (Other)
  Sender: FDA-Public Use
  Company Number: 2011AT000484

PATIENT
  Age: 22 Year
  Sex: Male

DRUGS (2)
  1. PREDNISONE TAB [Concomitant]
  2. TESTOSTERONE [Suspect]
     Indication: HYPOGONADISM
     Dosage: IM
     Route: 030

REACTIONS (2)
  - HAEMOPTYSIS [None]
  - HAEMANGIOMA [None]
